FAERS Safety Report 20578959 (Version 1)
Quarter: 2022Q1

REPORT INFORMATION
  Report Type: Spontaneous
  Country: US (occurrence: US)
  Receive Date: 20220310
  Receipt Date: 20220310
  Transmission Date: 20220423
  Serious: Yes (Death, Life-Threatening, Other)
  Sender: FDA-Public Use
  Company Number: US-SLATE RUN PHARMACEUTICALS-22US000957

PATIENT

DRUGS (2)
  1. AZITHROMYCIN [Suspect]
     Active Substance: AZITHROMYCIN
     Indication: Product used for unknown indication
     Dosage: UNK
     Dates: start: 20200331
  2. CEFTRIAXONE [Concomitant]
     Active Substance: CEFTRIAXONE
     Indication: Product used for unknown indication
     Dosage: UNK
     Dates: start: 20200331

REACTIONS (14)
  - Death [Fatal]
  - Acute respiratory failure [Unknown]
  - Acute respiratory distress syndrome [Unknown]
  - Organ failure [Unknown]
  - Tachypnoea [Unknown]
  - Bacteraemia [Unknown]
  - Thrombosis [Unknown]
  - C-reactive protein increased [Unknown]
  - Pulmonary alveolar haemorrhage [Unknown]
  - Wound [Unknown]
  - Pyrexia [Unknown]
  - Dyspnoea [Unknown]
  - Maternal exposure during pregnancy [Recovered/Resolved]
  - Intrapartum haemorrhage [Unknown]

NARRATIVE: CASE EVENT DATE: 20200101
